FAERS Safety Report 6482603-6 (Version None)
Quarter: 2009Q4

REPORT INFORMATION
  Report Type: 
  Country: None (occurrence: None)
  Receive Date: 20091209
  Receipt Date: 20091130
  Transmission Date: 20100525
  Serious: Yes (Hospitalization, Other)
  Sender: FDA-Public Use
  Company Number: AU-RANBAXY-2009US-27311

PATIENT

DRUGS (2)
  1. TEMPRA [Suspect]
     Indication: PYREXIA
     Dosage: 50 MG, 4 HOURLY, 2 DAYS APPROX 100 MG/KG/DAY
     Route: 048
  2. TYLENOL (CAPLET) [Suspect]
     Indication: PYREXIA
     Route: 065

REACTIONS (2)
  - DRUG TOXICITY [None]
  - LIVER INJURY [None]
